FAERS Safety Report 10705783 (Version 4)
Quarter: 2015Q2

REPORT INFORMATION
  Report Type: Spontaneous
  Country: US (occurrence: US)
  Receive Date: 20150112
  Receipt Date: 20150422
  Transmission Date: 20150821
  Serious: Yes (Other)
  Sender: FDA-Public Use
  Company Number: US-GLAXOSMITHKLINE-US2015GSK002616

PATIENT
  Age: 31 Year
  Sex: Female

DRUGS (2)
  1. LAMOTRIGINE. [Suspect]
     Active Substance: LAMOTRIGINE
     Indication: EPILEPSY
     Dosage: 2-100 MG AT NIGHT AND 1-100 MG IN THE MORNING
     Route: 065
  2. LAMICTAL XR [Suspect]
     Active Substance: LAMOTRIGINE
     Indication: EPILEPSY
     Dosage: 300 MG XR IN THE MORNING AND 100 MG XR IN THE LATE AFTERNOON/EVENING

REACTIONS (5)
  - Tongue biting [Unknown]
  - Haemorrhage [Unknown]
  - Road traffic accident [Recovered/Resolved]
  - Seizure [Recovered/Resolved]
  - Aura [Unknown]

NARRATIVE: CASE EVENT DATE: 20100501
